FAERS Safety Report 9331724 (Version 1)
Quarter: 2013Q2

REPORT INFORMATION
  Report Type: Spontaneous
  Country: US (occurrence: None)
  Receive Date: 20130523
  Receipt Date: 20130523
  Transmission Date: 20140414
  Serious: Yes (Hospitalization)
  Sender: FDA-Public Use
  Company Number: 2011028556

PATIENT
  Age: 19 Year
  Sex: Female
  Weight: 61.24 kg

DRUGS (18)
  1. HIZENTRA [Suspect]
     Indication: IMMUNODEFICIENCY COMMON VARIABLE
     Dosage: 7 G 1X/WEEK, ` GM 5 ML VIAL, 35 ML IN 2-3 SITES OVER 1 HR SUBCUTANEOUS?
     Route: 058
     Dates: start: 20110125
  2. ALBUTEROL (SALBUTAMOL) [Concomitant]
  3. ALEVE (NAPROXEN SODIUM) [Concomitant]
  4. TYLENOL WITH CODEINE (PANADEINE CO) [Concomitant]
  5. FLUOXETINE HCL (FLUOXETINE HYDROCHLORIDE) [Concomitant]
  6. TRAZODONE (TRAZODONE) [Concomitant]
  7. DIPHENHYDRAMINE (DIPHENHYDRAMINE) [Concomitant]
  8. LMX (LIDOCAINE) [Concomitant]
  9. FLEXERIL (CYCLOBENZAPRINE HYDROCHLORIDE) [Concomitant]
  10. ACETAMINOPHEN (PARACETAMOL) [Concomitant]
  11. LIDOCAINE/PRILOCAINE (EMLA/00675501/) [Concomitant]
  12. EPI PEN (EPINEPHRINE) [Concomitant]
  13. XANAX (ALPRAZOLAM) [Concomitant]
  14. PAXIL (PAROXETINE HYDROCHLORIDE) [Concomitant]
  15. CYMBALTA (DULOXETINE HYDROCHLORIDE) [Concomitant]
  16. ADDERALL (OBETROL/01345401/) [Concomitant]
  17. ATROVENT (IPRATROPIUM BROMIDE) [Concomitant]
  18. LIDODERM (LIDOCAINE) [Concomitant]

REACTIONS (10)
  - Nausea [None]
  - Headache [None]
  - Vomiting [None]
  - Tremor [None]
  - Pain [None]
  - Back pain [None]
  - Grand mal convulsion [None]
  - Head injury [None]
  - Infusion related reaction [None]
  - Rash maculo-papular [None]
